FAERS Safety Report 9954418 (Version 1)
Quarter: 2014Q1

REPORT INFORMATION
  Report Type: Spontaneous
  Country: US (occurrence: US)
  Receive Date: 20140304
  Receipt Date: 20140304
  Transmission Date: 20141002
  Serious: Yes (Other)
  Sender: FDA-Public Use
  Company Number: PHHY2014US023836

PATIENT
  Age: 76 Year
  Sex: Female

DRUGS (6)
  1. BORTEZOMIB [Suspect]
     Indication: AMYLOIDOSIS
     Dosage: 1.3 MG/M2, UNK
  2. DEXAMETHASONE [Suspect]
     Indication: AMYLOIDOSIS
     Dosage: 10 MG, UNK
  3. ONDANSETRON [Suspect]
     Indication: PREMEDICATION
     Dosage: 24 MG, UNK
     Route: 042
  4. ONDANSETRON [Suspect]
     Dosage: 8 MG, UNK
     Route: 042
  5. LENALIDOMIDE [Suspect]
     Indication: AMYLOIDOSIS
     Dosage: 10 MG, UNK
  6. CYCLOPHOSPHAMIDE [Suspect]
     Indication: AMYLOIDOSIS
     Dosage: 250 MG, UNK

REACTIONS (7)
  - Amyloidosis [Unknown]
  - Renal amyloidosis [Unknown]
  - Disease recurrence [Unknown]
  - Disease progression [Unknown]
  - Hypotension [Unknown]
  - Drug effect incomplete [Unknown]
  - Dizziness [Recovered/Resolved]
